FAERS Safety Report 18879293 (Version 1)
Quarter: 2021Q1

REPORT INFORMATION
  Report Type: Report from Study
  Country: US (occurrence: US)
  Receive Date: 20210211
  Receipt Date: 20210211
  Transmission Date: 20210420
  Serious: Yes (Other)
  Sender: FDA-Public Use
  Company Number: US-EMD SERONO-9166969

PATIENT
  Age: 28 Year
  Sex: Female

DRUGS (3)
  1. MAVENCLAD [Suspect]
     Active Substance: CLADRIBINE
     Indication: MULTIPLE SCLEROSIS
     Dosage: YEAR ONE MONTH ONE THERAPY
     Route: 048
     Dates: start: 20200502, end: 20200506
  2. MAVENCLAD [Suspect]
     Active Substance: CLADRIBINE
     Dosage: YEAR ONE MONTH TWO THERAPY
     Route: 048
     Dates: start: 20200603, end: 20200607
  3. MODAFINIL. [Concomitant]
     Active Substance: MODAFINIL
     Indication: FATIGUE

REACTIONS (7)
  - Orbital oedema [Recovered/Resolved]
  - Alopecia [Unknown]
  - Hordeolum [Recovered/Resolved]
  - Eye infection [Recovered/Resolved]
  - Fatigue [Not Recovered/Not Resolved]
  - Swelling face [Recovered/Resolved]
  - Lip swelling [Recovered/Resolved]

NARRATIVE: CASE EVENT DATE: 2020
